FAERS Safety Report 9847288 (Version 2)
Quarter: 2014Q1

REPORT INFORMATION
  Report Type: Spontaneous
  Country: GR (occurrence: GR)
  Receive Date: 20140127
  Receipt Date: 20140306
  Transmission Date: 20141002
  Serious: Yes (Hospitalization)
  Sender: FDA-Public Use
  Company Number: GR-ABBVIE-14P-066-1192474-00

PATIENT
  Age: 50 Year
  Sex: Male
  Weight: 75 kg

DRUGS (3)
  1. HUMIRA [Suspect]
     Indication: CROHN^S DISEASE
     Route: 058
     Dates: start: 201207
  2. DIALOSA [Concomitant]
     Indication: DIABETES MELLITUS
  3. VILDAGLIPTIN [Concomitant]
     Indication: DIABETES MELLITUS

REACTIONS (5)
  - Renal artery stenosis [Not Recovered/Not Resolved]
  - Renovascular hypertension [Not Recovered/Not Resolved]
  - Blood creatinine increased [Not Recovered/Not Resolved]
  - Crohn^s disease [Recovering/Resolving]
  - Renal failure [Not Recovered/Not Resolved]
